FAERS Safety Report 12221686 (Version 1)
Quarter: 2016Q1

REPORT INFORMATION
  Report Type: Spontaneous
  Country: US (occurrence: US)
  Receive Date: 20160330
  Receipt Date: 20160330
  Transmission Date: 20160526
  Serious: No
  Sender: FDA-Public Use
  Company Number: US-PERRIGO-15US012018

PATIENT
  Age: 60 Year
  Sex: Male
  Weight: 89.8 kg

DRUGS (1)
  1. GOOD SENSE COMPLETE [Suspect]
     Active Substance: CALCIUM CARBONATE\FAMOTIDINE\MAGNESIUM HYDROXIDE
     Indication: DYSPEPSIA
     Dosage: 1 TABLET, QD
     Route: 048
     Dates: start: 20151105, end: 20151112

REACTIONS (2)
  - Drug effect incomplete [Unknown]
  - Faeces discoloured [Recovering/Resolving]

NARRATIVE: CASE EVENT DATE: 201511
